FAERS Safety Report 10484680 (Version 2)
Quarter: 2014Q3

REPORT INFORMATION
  Report Type: Report from Study
  Country: None (occurrence: DE)
  Receive Date: 20140930
  Receipt Date: 20140930
  Transmission Date: 20150326
  Serious: Yes (Hospitalization, Other)
  Sender: FDA-Public Use
  Company Number: DE-CELGENE-062-50794-14075010

PATIENT
  Age: 70 Year
  Sex: Female
  Weight: 78.3 kg

DRUGS (3)
  1. LAXANS [Concomitant]
     Indication: CONSTIPATION
     Dosage: 5-20
     Route: 048
     Dates: start: 20101122, end: 20110405
  2. EXJADE [Concomitant]
     Active Substance: DEFERASIROX
     Route: 065
     Dates: start: 20100804, end: 20130814
  3. VIDAZA [Suspect]
     Active Substance: AZACITIDINE
     Indication: PRODUCT USED FOR UNKNOWN INDICATION
     Route: 058
     Dates: start: 20101115, end: 20110510

REACTIONS (9)
  - Leukopenia [Recovered/Resolved]
  - Haemarthrosis [Recovered/Resolved]
  - Neutropenia [Recovered/Resolved]
  - Neutropenia [Not Recovered/Not Resolved]
  - Abscess [Recovered/Resolved]
  - Leukopenia [Recovered/Resolved]
  - Neutropenia [Recovered/Resolved]
  - Leukopenia [Recovered/Resolved with Sequelae]
  - Neutropenia [Recovered/Resolved with Sequelae]

NARRATIVE: CASE EVENT DATE: 20101220
